FAERS Safety Report 7297913-2 (Version None)
Quarter: 2011Q1

REPORT INFORMATION
  Report Type: 
  Country: None (occurrence: None)
  Receive Date: 20110207
  Receipt Date: 20110126
  Transmission Date: 20110831
  Serious: Yes (Hospitalization, Other)
  Sender: FDA-Public Use
  Company Number: 201110042

PATIENT
  Sex: Male

DRUGS (1)
  1. LIORESAL [Suspect]
     Indication: MUSCLE SPASTICITY
     Dosage: 94.96 MCG, DAILY, INTRATHECAL
     Route: 037

REACTIONS (10)
  - DEVICE DISLOCATION [None]
  - PHOTOPHOBIA [None]
  - CONDITION AGGRAVATED [None]
  - HEADACHE [None]
  - VOMITING [None]
  - CONSTIPATION [None]
  - MUSCLE SPASTICITY [None]
  - SWELLING [None]
  - CATHETER SITE INFECTION [None]
  - PYREXIA [None]
